FAERS Safety Report 8862970 (Version 1)
Quarter: 2012Q4

REPORT INFORMATION
  Report Type: 
  Country: US (occurrence: US)
  Receive Date: 20121026
  Receipt Date: 20121026
  Transmission Date: 20130627
  Serious: Yes (Hospitalization)
  Sender: FDA-Public Use
  Company Number: US-ALLERGAN-1204825US

PATIENT
  Age: 72 Year
  Sex: Female

DRUGS (4)
  1. ALPHAGAN P [Suspect]
     Indication: INCREASED INTRAOCULAR PRESSURE
     Dosage: 2 Gtt, bid
     Route: 047
     Dates: start: 201111, end: 20120331
  2. ATROVENT [Concomitant]
     Indication: EMPHYSEMA
     Dosage: UNK
     Route: 055
  3. PEPCID [Concomitant]
     Indication: DRUG USE FOR UNKNOWN INDICATION
     Dosage: UNK
     Route: 048
  4. GENTEAL [Concomitant]
     Indication: DRY EYES
     Dosage: UNK

REACTIONS (2)
  - Blood pressure increased [Not Recovered/Not Resolved]
  - Eye pain [Not Recovered/Not Resolved]
